FAERS Safety Report 20845965 (Version 3)
Quarter: 2022Q3

REPORT INFORMATION
  Report Type: Spontaneous
  Country: US (occurrence: US)
  Receive Date: 20220518
  Receipt Date: 20220920
  Transmission Date: 20221027
  Serious: Yes (Hospitalization)
  Sender: FDA-Public Use
  Company Number: US-BIOMARINAP-US-2022-143262

PATIENT

DRUGS (7)
  1. VIMIZIM [Suspect]
     Active Substance: ELOSULFASE ALFA
     Indication: Mucopolysaccharidosis IV
     Dosage: 40 MILLIGRAM, QW
     Route: 042
     Dates: start: 202205
  2. VIMIZIM [Suspect]
     Active Substance: ELOSULFASE ALFA
     Dosage: 40 MILLIGRAM, QW
     Route: 042
     Dates: start: 20150129
  3. VIMIZIM [Suspect]
     Active Substance: ELOSULFASE ALFA
     Dosage: UNK UNK, QW
     Route: 042
     Dates: start: 20141220
  4. CLARITIN [Concomitant]
     Active Substance: LORATADINE
     Indication: Sinus disorder
     Dosage: UNK, PRN
  5. AFRIN [Concomitant]
     Active Substance: OXYMETAZOLINE
     Indication: Sinus disorder
     Dosage: UNK, PRN
  6. VITAMINS [Concomitant]
     Active Substance: VITAMINS
     Indication: Product used for unknown indication
     Dosage: UNK, QD
  7. VITAMIN D [Concomitant]
     Active Substance: VITAMIN D NOS
     Indication: Product used for unknown indication
     Dosage: UNK, QD

REACTIONS (2)
  - Oxygen saturation decreased [Recovering/Resolving]
  - Somnolence [Unknown]

NARRATIVE: CASE EVENT DATE: 20220511
